FAERS Safety Report 16975745 (Version 1)
Quarter: 2019Q4

REPORT INFORMATION
  Report Type: Spontaneous
  Country: JP (occurrence: JP)
  Receive Date: 20191030
  Receipt Date: 20191030
  Transmission Date: 20200122
  Serious: Yes (Other)
  Sender: FDA-Public Use
  Company Number: JP-PFIZER INC-2019463586

PATIENT

DRUGS (2)
  1. AROMASIN [Suspect]
     Active Substance: EXEMESTANE
  2. AFINITOR [Suspect]
     Active Substance: EVEROLIMUS

REACTIONS (3)
  - Basophil count increased [Unknown]
  - Cardiac disorder [Unknown]
  - Platelet count decreased [Unknown]
